FAERS Safety Report 13410981 (Version 2)
Quarter: 2017Q4

REPORT INFORMATION
  Report Type: Spontaneous
  Country: US (occurrence: US)
  Receive Date: 20170406
  Receipt Date: 20171123
  Transmission Date: 20180320
  Serious: No
  Sender: FDA-Public Use
  Company Number: US-JNJFOC-20170304756

PATIENT
  Sex: Male

DRUGS (6)
  1. RISPERDAL [Suspect]
     Active Substance: RISPERIDONE
     Indication: AUTISM SPECTRUM DISORDER
     Route: 048
     Dates: end: 20090611
  2. RISPERDAL [Suspect]
     Active Substance: RISPERIDONE
     Indication: AUTISM SPECTRUM DISORDER
     Route: 048
     Dates: start: 20070626, end: 20080707
  3. RISPERIDONE. [Suspect]
     Active Substance: RISPERIDONE
     Indication: AUTISM SPECTRUM DISORDER
     Route: 065
     Dates: start: 20080804, end: 20090611
  4. RISPERIDONE. [Suspect]
     Active Substance: RISPERIDONE
     Indication: SEVERE MENTAL RETARDATION
     Route: 065
     Dates: start: 20080804, end: 20090611
  5. RISPERDAL [Suspect]
     Active Substance: RISPERIDONE
     Indication: SEVERE MENTAL RETARDATION
     Route: 048
     Dates: end: 20090611
  6. RISPERDAL [Suspect]
     Active Substance: RISPERIDONE
     Indication: SEVERE MENTAL RETARDATION
     Route: 048
     Dates: start: 20070626, end: 20080707

REACTIONS (2)
  - Gynaecomastia [Unknown]
  - Emotional disorder [Unknown]
